FAERS Safety Report 8374013-1 (Version None)
Quarter: 2012Q2

REPORT INFORMATION
  Report Type: 
  Country: None (occurrence: None)
  Receive Date: 20120517
  Receipt Date: 20120517
  Transmission Date: 20120825
  Serious: Yes (Life-Threatening)
  Sender: FDA-Public Use
  Company Number: None

PATIENT
  Sex: Female
  Weight: 75.2971 kg

DRUGS (2)
  1. VENOFER [Suspect]
     Indication: ANAEMIA
     Dosage: 500 MG -25 ML- 1 DOSE IV  4 HOURS 3 MINUTES
     Route: 042
     Dates: start: 20120420, end: 20120420
  2. SODIUM CHLORIDE 0.9% [Suspect]
     Indication: ANAEMIA
     Dosage: 250 ML 1 DOSE IV 4 HOURS 3 MINUTES
     Route: 042
     Dates: start: 20120420, end: 20120420

REACTIONS (18)
  - BLOOD PRESSURE SYSTOLIC INCREASED [None]
  - BODY TEMPERATURE DECREASED [None]
  - SOMNOLENCE [None]
  - CARDIAC ARREST [None]
  - BLOOD PRESSURE DIASTOLIC DECREASED [None]
  - OXYGEN SATURATION DECREASED [None]
  - FEELING ABNORMAL [None]
  - PARAESTHESIA [None]
  - BLOOD GLUCOSE INCREASED [None]
  - SINUS BRADYCARDIA [None]
  - SINUS TACHYCARDIA [None]
  - MUSCULOSKELETAL PAIN [None]
  - PERIPHERAL COLDNESS [None]
  - RESPIRATION ABNORMAL [None]
  - FATIGUE [None]
  - OEDEMA PERIPHERAL [None]
  - PALLOR [None]
  - UNRESPONSIVE TO STIMULI [None]
